FAERS Safety Report 6257265-3 (Version None)
Quarter: 2009Q3

REPORT INFORMATION
  Report Type: 
  Country: None (occurrence: None)
  Receive Date: 20090706
  Receipt Date: 20090629
  Transmission Date: 20100115
  Serious: Yes (Death)
  Sender: FDA-Public Use
  Company Number: US-GILEAD-2009-0022840

PATIENT
  Sex: Female
  Weight: 74.91 kg

DRUGS (14)
  1. LETAIRIS [Suspect]
     Indication: PULMONARY ARTERIAL HYPERTENSION
     Route: 048
     Dates: start: 20090501
  2. OXYGEN [Concomitant]
  3. ASPIRIN [Concomitant]
  4. PLAVIX [Concomitant]
  5. FUROSEMIDE [Concomitant]
  6. METOPROLOL [Concomitant]
  7. PERFOROMIST [Concomitant]
  8. IPRATROPIUM BROMIDE [Concomitant]
  9. ALBUTEROL [Concomitant]
  10. KLOR-CON [Concomitant]
  11. MEGESTROL ACETATE [Concomitant]
  12. DAILY MULTIVITAMIN [Concomitant]
  13. DAILY IRON [Concomitant]
  14. OMEPRAZOLE [Concomitant]

REACTIONS (1)
  - DEATH [None]
